FAERS Safety Report 4304816-1 (Version None)
Quarter: 2004Q1

REPORT INFORMATION
  Report Type: 
  Country: None (occurrence: None)
  Receive Date: 20040223
  Receipt Date: 20030328
  Transmission Date: 20041129
  Serious: Yes (Hospitalization)
  Sender: FDA-Public Use
  Company Number: TAP2003Q00769

PATIENT
  Age: 77 Year
  Sex: Male
  Weight: 83.9154 kg

DRUGS (8)
  1. LUPRON DEPOT-3 [Suspect]
     Indication: PROSTATE CANCER
     Dosage: 22.5 MG, ONCE, INTRAMUSCULAR
     Route: 030
     Dates: start: 20030326, end: 20030325
  2. LOPRESSOR [Concomitant]
  3. ZOCOR [Concomitant]
  4. ASPIRIN TAB [Concomitant]
  5. HYDROCHLOROTHIAZIDE [Concomitant]
  6. FLOMAX [Concomitant]
  7. COZAAR [Concomitant]
  8. ALLOPURINOL [Concomitant]

REACTIONS (7)
  - BLOOD PRESSURE FLUCTUATION [None]
  - CONDITION AGGRAVATED [None]
  - DIZZINESS [None]
  - HOT FLUSH [None]
  - HYPERTENSION [None]
  - HYPOTENSION [None]
  - VISUAL DISTURBANCE [None]
